FAERS Safety Report 4270652-8 (Version None)
Quarter: 2004Q1

REPORT INFORMATION
  Report Type: 
  Country: None (occurrence: None)
  Receive Date: 20040114
  Receipt Date: 20030822
  Transmission Date: 20041129
  Serious: Yes (Death)
  Sender: FDA-Public Use
  Company Number: DE-BRISTOL-MYERS SQUIBB COMPANY-12363438

PATIENT
  Age: 55 Year
  Sex: Female
  Weight: 64 kg

DRUGS (2)
  1. TAXOL [Suspect]
     Indication: BREAST CANCER
     Dosage: 1ST CYCLE ON 29APR02  DISCONT'D DUE TO TUMOR PROGRESSION
     Route: 042
     Dates: start: 20020714, end: 20020714
  2. HERCEPTIN [Suspect]
     Indication: BREAST CANCER
     Dosage: 1ST CYCLE ON 29APR02  DISCONT'D DUE TO TUMOR PROGRESSION
     Dates: start: 20020714, end: 20020714

REACTIONS (4)
  - METASTASIS [None]
  - NEOPLASM PROGRESSION [None]
  - NERVOUS SYSTEM DISORDER [None]
  - PARAESTHESIA [None]
